FAERS Safety Report 25668913 (Version 2)
Quarter: 2025Q4

REPORT INFORMATION
  Report Type: Spontaneous
  Country: RU (occurrence: RU)
  Receive Date: 20250812
  Receipt Date: 20251003
  Transmission Date: 20260118
  Serious: Yes (Death, Other)
  Sender: ROCHE
  Company Number: RU-ROCHE-10000356858

PATIENT
  Sex: Male

DRUGS (3)
  1. ATEZOLIZUMAB [Suspect]
     Active Substance: ATEZOLIZUMAB
     Indication: Non-small cell lung cancer
     Dosage: SUBSEQUENT DOSES WAS ON 14/SEP/2021, 05-OCT-2021, 26-OCT-2021, 16/NOV/2022, 07/DEC/2021, 28/DEC/2021
     Route: 042
     Dates: start: 20210803, end: 20210914
  2. ATEZOLIZUMAB [Suspect]
     Active Substance: ATEZOLIZUMAB
     Dosage: SUBSEQUENT DOSES WAS ON 17/AUG/2021, 20/JUL/2022, 14/SEP/2022, 05/OCT/2022, 26/OCT/2022:
     Route: 042
     Dates: start: 20220412
  3. ATEZOLIZUMAB [Suspect]
     Active Substance: ATEZOLIZUMAB
     Route: 042
     Dates: start: 20230322

REACTIONS (7)
  - Death [Fatal]
  - Metastases to central nervous system [Unknown]
  - Hydrocephalus [Unknown]
  - Angiopathy [Unknown]
  - Respiratory tract infection viral [Unknown]
  - Cerebral disorder [Unknown]
  - Spinal osteoarthritis [Unknown]

NARRATIVE: CASE EVENT DATE: 20230609
